FAERS Safety Report 21018198 (Version 1)
Quarter: 2022Q2

REPORT INFORMATION
  Report Type: Spontaneous
  Country: US (occurrence: None)
  Receive Date: 20220627
  Receipt Date: 20220627
  Transmission Date: 20220721
  Serious: Yes (Other)
  Sender: FDA-Public Use
  Company Number: None

PATIENT
  Sex: Female

DRUGS (1)
  1. ACTEMRA [Suspect]
     Active Substance: TOCILIZUMAB
     Indication: Rheumatoid arthritis
     Dosage: 162 MG/0.9ML??INJECT 1 SYRINGE UNDER THE SKIN (SUBCUTANEOUS  INJECTION) ONCE A WEEK?
     Route: 058
     Dates: start: 20180111

REACTIONS (5)
  - Surgery [None]
  - Loss of personal independence in daily activities [None]
  - Therapy interrupted [None]
  - Pain [None]
  - Rheumatoid arthritis [None]
